FAERS Safety Report 8263014-X (Version None)
Quarter: 2012Q2

REPORT INFORMATION
  Report Type: 
  Country: None (occurrence: None)
  Receive Date: 20120405
  Receipt Date: 20120330
  Transmission Date: 20120825
  Serious: Yes (Hospitalization)
  Sender: FDA-Public Use
  Company Number: US-B.I. PHARMACEUTICALS,INC./RIDGEFIELD-2012-BP-06021BP

PATIENT
  Age: 65 Year
  Sex: Female

DRUGS (12)
  1. PRADAXA [Suspect]
     Dosage: 150 MG
     Route: 048
     Dates: start: 20120329, end: 20120330
  2. ALBUTEROL [Concomitant]
     Route: 055
  3. FENOFIBRATE [Concomitant]
     Indication: BLOOD CHOLESTEROL INCREASED
     Dosage: 130 MG
     Route: 048
  4. PRADAXA [Suspect]
     Indication: ATRIAL FIBRILLATION
     Dosage: 300 MG
     Route: 048
     Dates: end: 20120329
  5. MISOPROSTOL [Concomitant]
     Dosage: 600 MCG
     Route: 048
  6. MISOPROSTOL [Concomitant]
     Dosage: 200 MCG
     Route: 048
  7. LANTUS [Concomitant]
     Indication: DIABETES MELLITUS
     Route: 058
  8. HYDROCHLOROTHIAZIDE [Concomitant]
     Indication: HYPERTENSION
     Dosage: 25 MG
     Route: 048
  9. LOSARTAN POTASSIUM [Concomitant]
     Indication: HYPERTENSION
     Dosage: 100 MG
     Route: 048
  10. BACTRIM DS [Concomitant]
     Indication: URINARY TRACT INFECTION
     Route: 048
  11. MULTAQ [Concomitant]
     Dosage: 800 MG
     Route: 048
  12. GLIMEPIRIDE [Concomitant]
     Indication: DIABETES MELLITUS
     Dosage: 8 MG
     Route: 048

REACTIONS (1)
  - PERICARDIAL EFFUSION [None]
